FAERS Safety Report 8072743-2 (Version None)
Quarter: 2012Q1

REPORT INFORMATION
  Report Type: 
  Country: None (occurrence: None)
  Receive Date: 20120126
  Receipt Date: 20111215
  Transmission Date: 20120608
  Serious: Yes (Hospitalization)
  Sender: FDA-Public Use
  Company Number: NO-ELI_LILLY_AND_COMPANY-NO201201007498

PATIENT
  Age: 9 Year
  Sex: Female

DRUGS (2)
  1. STRATTERA [Suspect]
  2. CONCERTA [Concomitant]

REACTIONS (1)
  - PANCREATITIS [None]
